FAERS Safety Report 7106690-7 (Version None)
Quarter: 2010Q4

REPORT INFORMATION
  Report Type: 
  Country: None (occurrence: None)
  Receive Date: 20101116
  Receipt Date: 20101019
  Transmission Date: 20110411
  Serious: No
  Sender: FDA-Public Use
  Company Number: US-ABBOTT-10P-163-0679459-00

PATIENT
  Sex: Female
  Weight: 61.29 kg

DRUGS (4)
  1. SIMCOR [Suspect]
     Indication: BLOOD CHOLESTEROL INCREASED
     Dosage: 500/20MG AT BEDTIME
     Route: 048
     Dates: start: 20100701
  2. ACTONEL [Suspect]
     Indication: BONE DENSITY ABNORMAL
  3. DIOVAN [Suspect]
     Indication: HYPERTENSION
  4. ASPIRIN [Concomitant]
     Indication: PRODUCT USED FOR UNKNOWN INDICATION
     Dosage: ONCE DAILY WITH NIASPAN
     Route: 048

REACTIONS (1)
  - RASH [None]
